FAERS Safety Report 11791808 (Version 3)
Quarter: 2015Q4

REPORT INFORMATION
  Report Type: Spontaneous
  Country: US (occurrence: US)
  Receive Date: 20151201
  Receipt Date: 20151228
  Transmission Date: 20160305
  Serious: Yes (Other)
  Sender: FDA-Public Use
  Company Number: US-LUNDBECK-DKLU2007060

PATIENT
  Age: 31 Year
  Sex: Male

DRUGS (7)
  1. DEPAKOTE [Concomitant]
     Active Substance: DIVALPROEX SODIUM
     Indication: SEIZURE
     Route: 065
  2. ONFI [Suspect]
     Active Substance: CLOBAZAM
     Route: 065
     Dates: start: 201511
  3. ONFI [Suspect]
     Active Substance: CLOBAZAM
     Route: 065
     Dates: start: 201511, end: 201511
  4. ONFI [Suspect]
     Active Substance: CLOBAZAM
     Indication: SEIZURE
     Route: 065
     Dates: start: 201511, end: 201511
  5. ONFI [Suspect]
     Active Substance: CLOBAZAM
     Route: 065
     Dates: start: 20151105, end: 201511
  6. VIMPAT [Suspect]
     Active Substance: LACOSAMIDE
     Indication: SEIZURE
     Dosage: TITRATING UP
     Route: 065
     Dates: end: 20151119
  7. VIMPAT [Suspect]
     Active Substance: LACOSAMIDE
     Route: 065

REACTIONS (9)
  - Generalised tonic-clonic seizure [Recovered/Resolved]
  - Dyskinesia [Unknown]
  - Feeling abnormal [Unknown]
  - Fatigue [Unknown]
  - Drug ineffective [Unknown]
  - Nausea [Unknown]
  - Lethargy [Unknown]
  - Hyperhidrosis [Unknown]
  - Syncope [Unknown]

NARRATIVE: CASE EVENT DATE: 201511
